FAERS Safety Report 5216677-7 (Version None)
Quarter: 2007Q1

REPORT INFORMATION
  Report Type: 
  Country: None (occurrence: None)
  Receive Date: 20061130
  Receipt Date: 20060418
  Transmission Date: 20070707
  Serious: Yes (Other)
  Sender: FDA-Public Use
  Company Number: US200604004270

PATIENT
  Age: 38 Year
  Sex: Male
  Weight: 102 kg

DRUGS (1)
  1. ZYPREXA [Suspect]
     Dosage: 20 MG, ORAL
     Route: 048
     Dates: start: 20010101, end: 20040101

REACTIONS (7)
  - BLOOD CHOLESTEROL INCREASED [None]
  - DIABETES MELLITUS [None]
  - HEPATITIS [None]
  - HYPERTENSION [None]
  - OBESITY [None]
  - PANCREATITIS [None]
  - VISION BLURRED [None]
